FAERS Safety Report 21772408 (Version 1)
Quarter: 2022Q4

REPORT INFORMATION
  Report Type: Spontaneous
  Country: CA (occurrence: CA)
  Receive Date: 20221223
  Receipt Date: 20221223
  Transmission Date: 20230112
  Serious: Yes (Death, Hospitalization)
  Sender: FDA-Public Use
  Company Number: CA-KARYOPHARM THERAPEUTICS, INC.-2022KPT001220

PATIENT

DRUGS (7)
  1. XPOVIO [Suspect]
     Active Substance: SELINEXOR
     Indication: Plasma cell myeloma
     Dosage: 100 MG, WEEKLY FOR 5 WEEKS (1 CYCLE)
     Route: 048
     Dates: start: 20220907
  2. XPOVIO [Suspect]
     Active Substance: SELINEXOR
     Dosage: 80 MG, WEEKLY FOR 5 WEEKS (1 CYCLE)
     Route: 048
     Dates: start: 2022, end: 2022
  3. XPOVIO [Suspect]
     Active Substance: SELINEXOR
     Dosage: 40 MG, WEEKLY FOR 5 WEEKS (1 CYCLE)
     Route: 048
     Dates: start: 20221102, end: 20221108
  4. XPOVIO [Suspect]
     Active Substance: SELINEXOR
     Dosage: 80 MG, WEEKLY FOR 5 WEEKS (1 CYCLE)
     Route: 048
     Dates: start: 20221109, end: 202212
  5. OLANZAPINE [Concomitant]
     Active Substance: OLANZAPINE
     Dosage: UNK
  6. ONDANSETRON [Concomitant]
     Active Substance: ONDANSETRON
     Dosage: UNK
  7. DEXAMETHASONE [Concomitant]
     Active Substance: DEXAMETHASONE
     Dosage: 12 MG
     Dates: start: 20220907

REACTIONS (4)
  - General physical health deterioration [Fatal]
  - Haemoglobin abnormal [Unknown]
  - White blood cell count abnormal [Unknown]
  - Platelet count decreased [Not Recovered/Not Resolved]

NARRATIVE: CASE EVENT DATE: 20220927
